FAERS Safety Report 6886025-5 (Version None)
Quarter: 2010Q3

REPORT INFORMATION
  Report Type: 
  Country: None (occurrence: None)
  Receive Date: 20100729
  Receipt Date: 20080927
  Transmission Date: 20110219
  Serious: Yes (Other)
  Sender: FDA-Public Use
  Company Number: US-PFIZER INC-2008064398

PATIENT
  Age: 44 Year
  Sex: Male

DRUGS (5)
  1. CELEBREX [Suspect]
     Route: 048
     Dates: start: 20070601
  2. ULTRAM [Concomitant]
  3. DARVOCET [Concomitant]
  4. LYRICA [Concomitant]
  5. ELAVIL [Concomitant]

REACTIONS (1)
  - CEREBROVASCULAR ACCIDENT [None]
